FAERS Safety Report 11552630 (Version 1)
Quarter: 2015Q3

REPORT INFORMATION
  Report Type: Spontaneous
  Country: US (occurrence: US)
  Receive Date: 20150925
  Receipt Date: 20150925
  Transmission Date: 20151125
  Serious: Yes (Hospitalization, Other)
  Sender: FDA-Public Use
  Company Number: US-TEVA-593976USA

PATIENT
  Age: 51 Year
  Sex: Female
  Weight: 63.56 kg

DRUGS (10)
  1. MORPHINE [Suspect]
     Active Substance: MORPHINE
     Indication: NECK PAIN
  2. LYRICA [Suspect]
     Active Substance: PREGABALIN
     Indication: MUSCLE DISORDER
  3. LYRICA [Suspect]
     Active Substance: PREGABALIN
     Indication: RESTLESS LEGS SYNDROME
     Dosage: 100 MILLIGRAM DAILY;
     Route: 048
  4. CIPRO [Suspect]
     Active Substance: CIPROFLOXACIN HYDROCHLORIDE
     Indication: URINARY TRACT INFECTION
     Dosage: 1000 MILLIGRAM DAILY;
     Route: 048
  5. MORPHINE [Suspect]
     Active Substance: MORPHINE
     Indication: BACK PAIN
     Route: 048
  6. AZO-STANDARD [Suspect]
     Active Substance: PHENAZOPYRIDINE HYDROCHLORIDE
     Route: 065
  7. BACLOFEN. [Suspect]
     Active Substance: BACLOFEN
     Indication: MUSCLE SPASMS
     Dosage: 60 MILLIGRAM DAILY; AS NEEDED
     Route: 048
  8. LYRICA [Suspect]
     Active Substance: PREGABALIN
     Indication: BACK DISORDER
  9. LYRICA [Suspect]
     Active Substance: PREGABALIN
     Indication: NEURALGIA
  10. LYRICA [Suspect]
     Active Substance: PREGABALIN
     Indication: SPINAL CORD DISORDER

REACTIONS (12)
  - Decreased appetite [Not Recovered/Not Resolved]
  - Feeling abnormal [Unknown]
  - Urinary tract infection [Recovered/Resolved]
  - Eye disorder [Not Recovered/Not Resolved]
  - Renal disorder [Not Recovered/Not Resolved]
  - Dysuria [Unknown]
  - Sepsis [Recovered/Resolved]
  - Renal failure [Recovered/Resolved]
  - Weight decreased [Not Recovered/Not Resolved]
  - Loss of consciousness [Unknown]
  - Feeling jittery [Not Recovered/Not Resolved]
  - Dehydration [Unknown]

NARRATIVE: CASE EVENT DATE: 20150728
